FAERS Safety Report 4322580-7 (Version None)
Quarter: 2004Q1

REPORT INFORMATION
  Report Type: 
  Country: None (occurrence: None)
  Receive Date: 20040319
  Receipt Date: 20040123
  Transmission Date: 20041129
  Serious: Yes (Other)
  Sender: FDA-Public Use
  Company Number: US-JNJFOC-20040105460

PATIENT
  Age: 39 Year
  Sex: Female
  Weight: 67.1324 kg

DRUGS (2)
  1. ORTHO EVRA [Suspect]
     Indication: CONTRACEPTION
     Dosage: 1 DOSE(S), 3 IN 4 WEEK, TRANSDERMAL
     Route: 062
     Dates: start: 20031201
  2. MULTIVITAMIN (MULTIVITAMIN) [Concomitant]

REACTIONS (1)
  - BLINDNESS [None]
